FAERS Safety Report 5728479-3 (Version None)
Quarter: 2008Q2

REPORT INFORMATION
  Report Type: 
  Country: None (occurrence: None)
  Receive Date: 20080430
  Receipt Date: 20080416
  Transmission Date: 20081010
  Serious: Yes (Other)
  Sender: FDA-Public Use
  Company Number: S08-SAF-01302-01

PATIENT
  Age: 41 Year
  Sex: Female
  Weight: 110 kg

DRUGS (2)
  1. ESCITALOPRAM [Suspect]
     Dosage: 5 MG QD PO
     Route: 048
     Dates: start: 20070809, end: 20070813
  2. ESCITALOPRAM [Suspect]
     Dosage: 10 MG QD PO
     Route: 048
     Dates: start: 20070814

REACTIONS (4)
  - ANOREXIA [None]
  - DYSGEUSIA [None]
  - HYPERTENSION [None]
  - WEIGHT INCREASED [None]
